FAERS Safety Report 10521190 (Version 4)
Quarter: 2015Q1

REPORT INFORMATION
  Report Type: Spontaneous
  Country: BE (occurrence: BE)
  Receive Date: 20141016
  Receipt Date: 20150226
  Transmission Date: 20150720
  Serious: Yes (Hospitalization)
  Sender: FDA-Public Use
  Company Number: BE-AMGEN-BELSP2014079828

PATIENT
  Age: 6 Year
  Sex: Female

DRUGS (1)
  1. ENBREL [Suspect]
     Active Substance: ETANERCEPT
     Indication: JUVENILE IDIOPATHIC ARTHRITIS
     Dosage: 6.5 MG, 2X/WEEK
     Route: 058
     Dates: start: 20140825

REACTIONS (3)
  - Oral fungal infection [Unknown]
  - Intercepted drug dispensing error [Recovered/Resolved]
  - Diarrhoea [Unknown]

NARRATIVE: CASE EVENT DATE: 201410
